FAERS Safety Report 8095396-6 (Version None)
Quarter: 2012Q1

REPORT INFORMATION
  Report Type: 
  Country: None (occurrence: None)
  Receive Date: 20120125
  Receipt Date: 20120113
  Transmission Date: 20120608
  Serious: Yes (Hospitalization)
  Sender: FDA-Public Use
  Company Number: 2012SP003134

PATIENT
  Age: 50 Year
  Sex: Female

DRUGS (2)
  1. RIBAVIRIN [Suspect]
     Indication: HEPATITIS C
     Dosage: ;PO
     Route: 048
     Dates: start: 20000101
  2. INTERFERON [Suspect]
     Indication: HEPATITIS C
     Dates: start: 20000101

REACTIONS (4)
  - ANAEMIA [None]
  - DUODENAL ULCER [None]
  - FATIGUE [None]
  - ALOPECIA [None]
